FAERS Safety Report 7957515-9 (Version None)
Quarter: 2011Q4

REPORT INFORMATION
  Report Type: 
  Country: None (occurrence: None)
  Receive Date: 20111205
  Receipt Date: 20111129
  Transmission Date: 20120403
  Serious: Yes (Hospitalization)
  Sender: FDA-Public Use
  Company Number: US-GLAXOSMITHKLINE-A0950726A

PATIENT
  Sex: Male

DRUGS (2)
  1. RADIATION THERAPY [Concomitant]
  2. VOTRIENT [Suspect]
     Indication: PRODUCT USED FOR UNKNOWN INDICATION
     Dosage: 800MG PER DAY
     Route: 048
     Dates: start: 20110920

REACTIONS (9)
  - COUGH [None]
  - LUNG DISORDER [None]
  - SKIN ULCER [None]
  - RHINORRHOEA [None]
  - DYSPNOEA [None]
  - RETCHING [None]
  - DRY SKIN [None]
  - ABDOMINAL PAIN UPPER [None]
  - PRURITUS [None]
